FAERS Safety Report 9621582 (Version 1)
Quarter: 2013Q4

REPORT INFORMATION
  Report Type: Spontaneous
  Country: US (occurrence: US)
  Receive Date: 20131015
  Receipt Date: 20131015
  Transmission Date: 20140711
  Serious: Yes (Other)
  Sender: FDA-Public Use
  Company Number: US-PFIZER INC-2013294897

PATIENT
  Sex: Female

DRUGS (3)
  1. CHANTIX [Suspect]
     Indication: SMOKING CESSATION THERAPY
     Dosage: UNK
  2. TOPAMAX [Suspect]
     Dosage: 25 MG, 2X/DAY
  3. TOPAMAX [Suspect]
     Dosage: UNK

REACTIONS (1)
  - Mania [Unknown]
